FAERS Safety Report 9184789 (Version 1)
Quarter: 2013Q1

REPORT INFORMATION
  Report Type: Spontaneous
  Country: JP (occurrence: JP)
  Receive Date: 20130325
  Receipt Date: 20130325
  Transmission Date: 20140127
  Serious: Yes (Other)
  Sender: FDA-Public Use
  Company Number: PHHY2013JP026656

PATIENT
  Age: 61 Year
  Sex: Female
  Weight: 46 kg

DRUGS (10)
  1. DEXAMETHASONE [Suspect]
     Indication: PROPHYLAXIS
     Dosage: 16 MG, PER DAY
  2. DEXAMETHASONE [Suspect]
     Dosage: 8 MG, PER DAY
  3. CARBOPLATIN [Suspect]
     Indication: OVARIAN CANCER STAGE III
     Dosage: AUC 6
  4. PACLITAXEL [Suspect]
     Indication: OVARIAN EPITHELIAL CANCER
     Dosage: 175 MG/M2, UNK
  5. PACLITAXEL [Suspect]
     Dosage: 80 MG/M2, UNK
  6. DOXORUBICIN [Suspect]
     Indication: OVARIAN CANCER RECURRENT
     Dosage: 50 MG/M2, UNK
  7. DOXORUBICIN [Suspect]
     Dosage: 40 MG/M2, UNK
  8. MOSAPRIDE CITRATE [Concomitant]
     Route: 048
  9. VITAMIN B6 [Concomitant]
     Indication: PROPHYLAXIS
     Dosage: 300 MG, PER DAY
  10. PRAVASTATIN [Concomitant]
     Indication: HYPERLIPIDAEMIA

REACTIONS (7)
  - Pneumocystis jirovecii pneumonia [Recovering/Resolving]
  - Cough [Unknown]
  - Lung adenocarcinoma metastatic [Unknown]
  - Ovarian cancer recurrent [Unknown]
  - Neutropenia [Unknown]
  - Thrombocytopenia [Unknown]
  - Pyrexia [Unknown]
